FAERS Safety Report 6868549-X (Version None)
Quarter: 2010Q3

REPORT INFORMATION
  Report Type: 
  Country: None (occurrence: None)
  Receive Date: 20100722
  Receipt Date: 20080603
  Transmission Date: 20110219
  Serious: No
  Sender: FDA-Public Use
  Company Number: US-PFIZER INC-2008047749

PATIENT
  Age: 60 Year
  Sex: Male
  Weight: 104.54 kg

DRUGS (1)
  1. CHANTIX [Suspect]
     Dates: start: 20070815, end: 20070925

REACTIONS (3)
  - ANXIETY [None]
  - INSOMNIA [None]
  - NERVOUSNESS [None]
